FAERS Safety Report 8329749-5 (Version None)
Quarter: 2012Q2

REPORT INFORMATION
  Report Type: 
  Country: None (occurrence: None)
  Receive Date: 20120502
  Receipt Date: 20120427
  Transmission Date: 20120825
  Serious: Yes (Life-Threatening, Hospitalization)
  Sender: FDA-Public Use
  Company Number: BE-B.I. PHARMACEUTICALS,INC./RIDGEFIELD-2012-BL-00298BL

PATIENT
  Sex: Male
  Weight: 100 kg

DRUGS (10)
  1. ELTHYRONE [Concomitant]
     Dosage: 75 MCG
     Route: 048
  2. ASPIRIN [Concomitant]
     Dosage: 200 MG
     Route: 048
  3. PRADAXA [Suspect]
     Indication: ATRIAL FIBRILLATION
     Dosage: 300 MG
     Route: 048
     Dates: start: 20111001
  4. ALDACTONE [Concomitant]
     Dosage: 50 MG
     Route: 048
  5. BUMETANIDE [Concomitant]
     Dosage: 1 MG
     Route: 048
  6. CRESTOR [Concomitant]
     Dosage: 20 MG
     Route: 048
  7. LANOXIN [Concomitant]
     Dosage: 0.25 MG
     Route: 048
  8. ALLOPURINOL [Concomitant]
     Dosage: 300 MG
     Route: 048
  9. ASPIRIN [Concomitant]
     Dosage: 260 MG
     Route: 048
  10. GLUCOPHAGE [Concomitant]
     Dosage: 1700 MG
     Route: 048

REACTIONS (6)
  - ABDOMINAL DISCOMFORT [None]
  - DRUG INEFFECTIVE [None]
  - ATRIAL FIBRILLATION [None]
  - INTRACARDIAC THROMBUS [None]
  - NAUSEA [None]
  - EPIGASTRIC DISCOMFORT [None]
